FAERS Safety Report 4868787-1 (Version None)
Quarter: 2005Q4

REPORT INFORMATION
  Report Type: 
  Country: None (occurrence: None)
  Receive Date: 20051223
  Receipt Date: 20051215
  Transmission Date: 20060501
  Serious: Yes (Death, Hospitalization)
  Sender: FDA-Public Use
  Company Number: 2005134575

PATIENT
  Age: 70 Year
  Sex: Female
  Weight: 51 kg

DRUGS (5)
  1. LIPITOR [Suspect]
     Indication: BLOOD CHOLESTEROL
     Dosage: 10 MG (10 MG, 1 IN 1 D), ORAL
     Route: 048
     Dates: start: 20050507
  2. MOHRUS (KETOPROFEN) [Concomitant]
  3. SELBEX (TEPRENONE) [Concomitant]
  4. MARZULENE (SODIUM GUALENATE) [Concomitant]
  5. ALL OTHER THERAPEUTIC PRODUCTS (ALL OTHER THERAPEUTIC PRODUCTS) [Concomitant]

REACTIONS (2)
  - DIARRHOEA [None]
  - SUDDEN DEATH [None]
